FAERS Safety Report 8835458 (Version 1)
Quarter: 2012Q4

REPORT INFORMATION
  Report Type: 
  Country: US (occurrence: US)
  Receive Date: 20121011
  Receipt Date: 20121011
  Transmission Date: 20130627
  Serious: No
  Sender: FDA-Public Use
  Company Number: US-ASTRAZENECA-2012SE77171

PATIENT
  Age: 55 Year
  Sex: Female

DRUGS (2)
  1. SYMBICORT PMDI [Suspect]
     Indication: ASTHMA
     Dosage: 160/4.5 BID
     Route: 055
  2. SINGULAIR [Concomitant]

REACTIONS (2)
  - Exercise tolerance decreased [Unknown]
  - Intentional drug misuse [Unknown]
